FAERS Safety Report 23138998 (Version 1)
Quarter: 2023Q4

REPORT INFORMATION
  Report Type: Spontaneous
  Country: CA (occurrence: CA)
  Receive Date: 20231102
  Receipt Date: 20231102
  Transmission Date: 20240110
  Serious: Yes (Other)
  Sender: FDA-Public Use
  Company Number: CA-PFIZER INC-202300349400

PATIENT
  Age: 85 Year
  Sex: Female

DRUGS (8)
  1. RUXIENCE [Suspect]
     Active Substance: RITUXIMAB-PVVR
     Indication: Sjogren^s syndrome
     Dosage: 100 MG, WEEKLY
     Route: 065
  2. RUXIENCE [Suspect]
     Active Substance: RITUXIMAB-PVVR
     Indication: Immune thrombocytopenia
     Dosage: 1000 MG
     Route: 042
  3. DANAZOL [Suspect]
     Active Substance: DANAZOL
     Dosage: UNK
     Route: 065
  4. DEXA [DEXAMETHASONE PHOSPHATE] [Concomitant]
     Indication: Condition aggravated
     Dosage: 20 MG, 1X/DAY
     Route: 065
  5. DEXA [DEXAMETHASONE PHOSPHATE] [Concomitant]
     Dosage: 20 MG, 1X/DAY
     Route: 065
  6. DEXA [DEXAMETHASONE PHOSPHATE] [Concomitant]
     Dosage: 20 MG, 1X/DAY
     Route: 065
  7. ELTROMBOPAG [Concomitant]
     Active Substance: ELTROMBOPAG
     Dosage: UNK
     Route: 065
  8. PREDNISONE [Concomitant]
     Active Substance: PREDNISONE
     Route: 065

REACTIONS (2)
  - Drug-induced liver injury [Unknown]
  - Off label use [Unknown]
